FAERS Safety Report 9981902 (Version 1)
Quarter: 2014Q1

REPORT INFORMATION
  Report Type: Report from Study
  Country: US (occurrence: US)
  Receive Date: 20140307
  Receipt Date: 20140307
  Transmission Date: 20141002
  Serious: No
  Sender: FDA-Public Use
  Company Number: US-ABBVIE-13P-163-1177574-00

PATIENT
  Age: 69 Year
  Sex: Female
  Weight: 63.56 kg

DRUGS (4)
  1. HUMIRA [Suspect]
     Indication: CROHN^S DISEASE
     Dates: start: 2012, end: 2012
  2. HUMIRA [Suspect]
     Dates: start: 2012, end: 2012
  3. HUMIRA [Suspect]
     Dates: start: 2012, end: 201310
  4. STEROIDS [Suspect]
     Indication: CROHN^S DISEASE

REACTIONS (3)
  - Gait disturbance [Not Recovered/Not Resolved]
  - Pain in extremity [Not Recovered/Not Resolved]
  - Weight increased [Not Recovered/Not Resolved]
